FAERS Safety Report 20024474 (Version 1)
Quarter: 2021Q4

REPORT INFORMATION
  Report Type: Spontaneous
  Country: CA (occurrence: CA)
  Receive Date: 20211102
  Receipt Date: 20211102
  Transmission Date: 20220303
  Serious: Yes (Other)
  Sender: FDA-Public Use
  Company Number: CA-BAYER-2021A239115

PATIENT
  Sex: Male

DRUGS (1)
  1. VITRAKVI [Suspect]
     Active Substance: LAROTRECTINIB
     Indication: Salivary gland cancer
     Dosage: UNK
     Dates: start: 201907

REACTIONS (1)
  - Salivary gland cancer [None]

NARRATIVE: CASE EVENT DATE: 20200101
